FAERS Safety Report 4727638-6 (Version None)
Quarter: 2005Q3

REPORT INFORMATION
  Report Type: 
  Country: None (occurrence: None)
  Receive Date: 20050727
  Receipt Date: 20050727
  Transmission Date: 20060218
  Serious: Yes (Hospitalization)
  Sender: FDA-Public Use
  Company Number: None

PATIENT
  Age: 80 Year
  Sex: Male

DRUGS (9)
  1. OXYCODONE [Suspect]
     Indication: PAIN
     Dosage: 5-10 MG PO Q4-6H PM
     Route: 048
     Dates: start: 20050331, end: 20050607
  2. CODEINE 30 MG/APAP 325 MG [Suspect]
     Indication: PAIN
     Dosage: 1 PO Q6H PM
     Dates: start: 20050201, end: 20050607
  3. ACETAMINOPHEN AND CODEINE PHOSPHATE [Concomitant]
  4. DILTIAZEM [Concomitant]
  5. ENALAPRIL MALEATE [Concomitant]
  6. GUAIFENESIN DM [Concomitant]
  7. OXYCODONE HCL [Concomitant]
  8. TERAZOSIN HCL [Concomitant]
  9. WARFARIN [Concomitant]

REACTIONS (1)
  - ILEUS [None]
